FAERS Safety Report 5921896-8 (Version None)
Quarter: 2008Q4

REPORT INFORMATION
  Report Type: 
  Country: None (occurrence: None)
  Receive Date: 20081015
  Receipt Date: 20081002
  Transmission Date: 20090506
  Serious: Yes (Life-Threatening, Hospitalization)
  Sender: FDA-Public Use
  Company Number: 237036J08USA

PATIENT
  Age: 54 Year
  Sex: Female

DRUGS (4)
  1. REBIF [Suspect]
     Indication: MULTIPLE SCLEROSIS
     Dosage: 44 MCG, 3 IN 1 WEEKS, SUBCUTANEOUS
     Route: 058
     Dates: start: 20060729
  2. MORPHINE SULFATE [Suspect]
  3. GABAPENTIN [Concomitant]
  4. INSULIN PUMP (INSULIN /00030501/) [Concomitant]

REACTIONS (14)
  - BLOOD GLUCOSE INCREASED [None]
  - CRYING [None]
  - FALL [None]
  - FOOT FRACTURE [None]
  - HYPOGLYCAEMIA [None]
  - INJECTION SITE ERYTHEMA [None]
  - INJECTION SITE HAEMATOMA [None]
  - INJECTION SITE PAIN [None]
  - MENTAL STATUS CHANGES [None]
  - MULTIPLE SCLEROSIS RELAPSE [None]
  - NAUSEA [None]
  - SYNCOPE [None]
  - VOMITING [None]
  - WEIGHT INCREASED [None]
